FAERS Safety Report 5234524-4 (Version None)
Quarter: 2007Q1

REPORT INFORMATION
  Report Type: 
  Country: None (occurrence: None)
  Receive Date: 20070209
  Receipt Date: 20070201
  Transmission Date: 20070707
  Serious: Yes (Hospitalization)
  Sender: FDA-Public Use
  Company Number: US-MERCK-0701USA04807

PATIENT
  Age: 68 Year
  Sex: Female

DRUGS (11)
  1. SINGULAIR [Suspect]
     Indication: ASTHMA
     Route: 048
  2. PREDNISONE [Concomitant]
     Route: 065
  3. PREDNISONE [Concomitant]
     Route: 065
  4. MEDROL [Concomitant]
     Route: 065
  5. INSULIN [Concomitant]
     Route: 065
  6. ZOCOR [Concomitant]
     Route: 048
  7. LOTENSIN [Concomitant]
     Route: 065
  8. LASIX [Concomitant]
     Route: 065
  9. NEURONTIN [Concomitant]
     Route: 065
  10. ALBUTEROL [Concomitant]
     Route: 065
  11. FLONASE [Concomitant]
     Route: 065

REACTIONS (1)
  - ALLERGIC GRANULOMATOUS ANGIITIS [None]
